FAERS Safety Report 20680233 (Version 2)
Quarter: 2022Q2

REPORT INFORMATION
  Report Type: Spontaneous
  Country: DE (occurrence: None)
  Receive Date: 20220406
  Receipt Date: 20220428
  Transmission Date: 20220721
  Serious: Yes (Other)
  Sender: FDA-Public Use
  Company Number: DE-ROCHE-3064763

PATIENT
  Age: 72 Year
  Sex: Female

DRUGS (6)
  1. OBINUTUZUMAB [Suspect]
     Active Substance: OBINUTUZUMAB
     Indication: Follicular lymphoma
     Dosage: IN COMBINATION WITH REVLIMID
     Route: 042
     Dates: start: 20180701, end: 20181001
  2. REVLIMID [Suspect]
     Active Substance: LENALIDOMIDE
     Indication: Follicular lymphoma
     Dosage: IN COMBINATION WITH OBINUTUZUMAB
     Route: 065
     Dates: start: 20180701, end: 20181001
  3. FLUDARABINE [Concomitant]
     Active Substance: FLUDARABINE PHOSPHATE
     Indication: Follicular lymphoma
     Dosage: IN COMBINATION WITH TBI AND CYCLOPHOSPHAMID
     Dates: start: 20181025, end: 20181102
  4. CYCLOPHOSPHAMIDE [Concomitant]
     Active Substance: CYCLOPHOSPHAMIDE
     Indication: Follicular lymphoma
     Dosage: IN COMBINATION WITH TBI AND  FLUDARABIN
     Dates: start: 20181025, end: 20181102
  5. RITUXIMAB [Concomitant]
     Active Substance: RITUXIMAB
     Indication: Follicular lymphoma
     Dosage: IN COMBINATION WITH LENALIDOMID
     Dates: start: 20210101, end: 20210701
  6. LENALIDOMIDE [Concomitant]
     Active Substance: LENALIDOMIDE
     Indication: Follicular lymphoma
     Dosage: IN COMBINATION WITH RITUXIMAB BIOSIMILAR
     Dates: start: 20210101, end: 20210701

REACTIONS (3)
  - Lymphoma [Not Recovered/Not Resolved]
  - Off label use [Unknown]
  - Glomerular filtration rate decreased [Not Recovered/Not Resolved]

NARRATIVE: CASE EVENT DATE: 20180701
